FAERS Safety Report 22076444 (Version 1)
Quarter: 2023Q1

REPORT INFORMATION
  Report Type: Spontaneous
  Country: KR (occurrence: KR)
  Receive Date: 20230309
  Receipt Date: 20230309
  Transmission Date: 20230418
  Serious: Yes (Other)
  Sender: FDA-Public Use
  Company Number: KR-MLMSERVICE-20230216-4109169-1

PATIENT
  Age: 71 Year
  Sex: Female

DRUGS (3)
  1. METHOTREXATE [Suspect]
     Active Substance: METHOTREXATE
     Indication: Rheumatoid arthritis
     Dosage: UNK
  2. LEFLUNOMIDE [Suspect]
     Active Substance: LEFLUNOMIDE
     Indication: Rheumatoid arthritis
  3. TACROLIMUS [Suspect]
     Active Substance: TACROLIMUS
     Indication: Rheumatoid arthritis

REACTIONS (11)
  - Dermatophytosis [Recovering/Resolving]
  - Skin mass [Recovering/Resolving]
  - Erythema [Recovering/Resolving]
  - Nodule [Recovering/Resolving]
  - Skin lesion [Recovering/Resolving]
  - Chronic papillomatous dermatitis [Recovering/Resolving]
  - Subcutaneous abscess [Recovering/Resolving]
  - Pigmentation disorder [Recovering/Resolving]
  - Trichophytosis [Recovering/Resolving]
  - Fungal skin infection [Recovering/Resolving]
  - Septic shock [Recovering/Resolving]
